FAERS Safety Report 9204063 (Version 1)
Quarter: 2013Q2

REPORT INFORMATION
  Report Type: Spontaneous
  Country: US (occurrence: US)
  Receive Date: 20130402
  Receipt Date: 20130402
  Transmission Date: 20140414
  Serious: Yes (Death, Hospitalization)
  Sender: FDA-Public Use
  Company Number: US-PFIZER INC-2013091833

PATIENT
  Age: 16 Month
  Sex: 0

DRUGS (1)
  1. MOTRIN [Suspect]
     Dosage: FREQUENCY TEXT: SINGLE DAILY DOSE TEXT: 469 MG/KG, SINGLE
     Route: 048

REACTIONS (5)
  - Overdose [Fatal]
  - Apnoeic attack [Fatal]
  - Pneumonia aspiration [Fatal]
  - Sepsis [Fatal]
  - Convulsion [Fatal]
